FAERS Safety Report 10510967 (Version 2)
Quarter: 2014Q4

REPORT INFORMATION
  Report Type: Spontaneous
  Country: FI (occurrence: FI)
  Receive Date: 20141010
  Receipt Date: 20141010
  Transmission Date: 20150528
  Serious: Yes (Other)
  Sender: FDA-Public Use
  Company Number: FI-BAYER-2014-143350

PATIENT
  Age: 60 Year
  Sex: Female

DRUGS (1)
  1. STIVARGA [Suspect]
     Active Substance: REGORAFENIB
     Indication: COLORECTAL CANCER
     Dosage: UNK
     Dates: end: 20140924

REACTIONS (3)
  - Pyrexia [None]
  - C-reactive protein increased [None]
  - Eczema [None]

NARRATIVE: CASE EVENT DATE: 20140924
